FAERS Safety Report 10282380 (Version 1)
Quarter: 2014Q3

REPORT INFORMATION
  Report Type: Spontaneous
  Country: BR (occurrence: BR)
  Receive Date: 20140707
  Receipt Date: 20140707
  Transmission Date: 20150326
  Serious: Yes (Hospitalization)
  Sender: FDA-Public Use
  Company Number: BR-PFIZER INC-2014183452

PATIENT
  Age: 72 Year
  Sex: Female
  Weight: 44 kg

DRUGS (7)
  1. ATENOLOL. [Concomitant]
     Active Substance: ATENOLOL
     Indication: BLOOD PRESSURE ABNORMAL
     Dosage: 1 DF, 1X/DAY (IN THE MORNING)
     Dates: start: 2010
  2. GLIFAGE [Concomitant]
     Active Substance: METFORMIN HYDROCHLORIDE
     Indication: DIABETES MELLITUS
     Dosage: 1 DF, 3X/DAY (EVERY 8 HOURS)
     Dates: start: 2010
  3. MONOCORDIL [Concomitant]
     Active Substance: ISOSORBIDE MONONITRATE
     Dosage: 1 DF, 3X/DAY (EVERY 8 HOURS)
     Dates: start: 2010
  4. LIPITOR [Suspect]
     Active Substance: ATORVASTATIN CALCIUM
     Dosage: 20 MG, DAILY
     Route: 048
     Dates: start: 2010
  5. FOLIC ACID. [Concomitant]
     Active Substance: FOLIC ACID
     Indication: VITAMIN SUPPLEMENTATION
     Dosage: 1 DF, 1X/DAY (IN THE MORNING)
  6. NORIPURUM [Concomitant]
     Active Substance: IRON POLYMALTOSE
     Indication: ANAEMIA
     Dosage: 1 DF, 2X/DAY (EVERY 12 HOURS)
     Dates: start: 20140530
  7. DAFLON [Concomitant]
     Active Substance: DIOSMIN\HESPERIDIN
     Dosage: 1 DF, 2X/DAY (EVERY 12 HOURS)
     Dates: start: 2010

REACTIONS (3)
  - Traumatic lung injury [Unknown]
  - Fall [Unknown]
  - Rib fracture [Unknown]

NARRATIVE: CASE EVENT DATE: 201405
